FAERS Safety Report 5854807-4 (Version None)
Quarter: 2008Q3

REPORT INFORMATION
  Report Type: 
  Country: None (occurrence: None)
  Receive Date: 20080822
  Receipt Date: 20080121
  Transmission Date: 20090109
  Serious: No
  Sender: FDA-Public Use
  Company Number: US-ABBOTT-08P-163-0434914-00

PATIENT
  Sex: Female
  Weight: 58.112 kg

DRUGS (6)
  1. SYNTHROID [Suspect]
     Indication: HYPOTHYROIDISM
     Route: 048
     Dates: start: 19980101, end: 20080101
  2. SYNTHROID [Suspect]
     Route: 048
     Dates: start: 20080101
  3. ALPRAZOLAM [Suspect]
     Indication: INSOMNIA
     Dosage: WEANING OFF SLOWLY TO PREVENT WITHDRAW
     Route: 048
     Dates: start: 20050101
  4. VIRAL COCKTAIL [Concomitant]
     Indication: HIV INFECTION
     Route: 048
  5. ALPRAZOLAM [Concomitant]
     Dosage: WEANING OFF
     Route: 048
     Dates: start: 20050101
  6. LUNESTA [Concomitant]
     Indication: INSOMNIA
     Route: 048

REACTIONS (3)
  - BLOOD THYROID STIMULATING HORMONE INCREASED [None]
  - DRUG INEFFECTIVE [None]
  - GASTROOESOPHAGEAL REFLUX DISEASE [None]
